FAERS Safety Report 4349549-0 (Version None)
Quarter: 2004Q1

REPORT INFORMATION
  Report Type: 
  Country: None (occurrence: None)
  Receive Date: 20040329
  Receipt Date: 20031202
  Transmission Date: 20041129
  Serious: No
  Sender: FDA-Public Use
  Company Number: USA031253776

PATIENT
  Age: 40 Year
  Sex: Male
  Weight: 51 kg

DRUGS (2)
  1. STRATTERA [Suspect]
     Indication: ATTENTION DEFICIT/HYPERACTIVITY DISORDER
     Dosage: 80 MG/DAY
     Dates: start: 20031023
  2. LEVOXYL [Concomitant]

REACTIONS (5)
  - DYSURIA [None]
  - ERECTILE DYSFUNCTION [None]
  - NAUSEA [None]
  - PENIS DISORDER [None]
  - URINARY HESITATION [None]
